FAERS Safety Report 12907310 (Version 8)
Quarter: 2018Q4

REPORT INFORMATION
  Report Type: Report from Study
  Country: DE (occurrence: DE)
  Receive Date: 20161103
  Receipt Date: 20181016
  Transmission Date: 20190204
  Serious: Yes (Other)
  Sender: FDA-Public Use
  Company Number: DE-INCYTE CORPORATION-2016IN006854

PATIENT

DRUGS (23)
  1. RANEXA [Concomitant]
     Active Substance: RANOLAZINE
     Indication: ANGINA PECTORIS
     Dosage: 500 MG, UNK
     Route: 048
  2. NITROLINGUAL [Concomitant]
     Active Substance: NITROGLYCERIN
     Indication: ANGINA PECTORIS
     Dosage: UNK UNK, PRN
     Route: 055
  3. NEUROPLANT [Concomitant]
     Indication: DEPRESSION
     Dosage: 60 MG, UNK
     Route: 048
  4. RAMILICH [Concomitant]
     Active Substance: RAMIPRIL
     Indication: ATRIAL FIBRILLATION
     Dosage: 1.25 MG, BID
     Route: 048
     Dates: start: 201606
  5. SYMBICORT [Concomitant]
     Active Substance: BUDESONIDE\FORMOTEROL FUMARATE DIHYDRATE
     Indication: ANGINA PECTORIS
     Dosage: 1 DF (BUDESONIDE 160 MG , FORMOTEROL FUMARATE 4.5 MG), PRN
     Route: 048
     Dates: start: 2013
  6. JAKAVI [Suspect]
     Active Substance: RUXOLITINIB
     Dosage: 10 MG, QD
     Route: 048
     Dates: start: 20170629, end: 20171108
  7. BELOC-ZOC COMP [Concomitant]
     Active Substance: HYDROCHLOROTHIAZIDE\METOPROLOL SUCCINATE
     Indication: ATRIAL FIBRILLATION
  8. JANUMET [Concomitant]
     Active Substance: METFORMIN HYDROCHLORIDE\SITAGLIPTIN PHOSPHATE
     Indication: TYPE 2 DIABETES MELLITUS
     Dosage: METFORMIN HYDROCHLORIDE 1000 MG, SITAGLIPTIN PHOSPHATE MONOHYDRATE 50 MG
     Route: 048
  9. RAMILICH [Concomitant]
     Active Substance: RAMIPRIL
     Indication: HYPERTENSION
  10. DELIX                              /00885601/ [Concomitant]
     Active Substance: RAMIPRIL
     Indication: ATRIAL FIBRILLATION
  11. BUPROPION. [Concomitant]
     Active Substance: BUPROPION
     Indication: DEPRESSION
     Dosage: 150 MG, QD
     Route: 048
     Dates: start: 201607
  12. JAKAVI [Suspect]
     Active Substance: RUXOLITINIB
     Indication: POLYCYTHAEMIA VERA
     Dosage: 15 MG, QD
     Route: 048
     Dates: start: 20160215, end: 20170628
  13. GINKO                              /01003101/ [Concomitant]
     Active Substance: GINKGO
     Indication: DEPRESSION
     Dosage: 100 MG, UNK
     Route: 048
  14. DOXYCYCLIN                         /00055701/ [Concomitant]
     Active Substance: DOXYCYCLINE
     Indication: INFECTION
     Dosage: 100 MG, Q12H
     Route: 048
     Dates: start: 20160311, end: 20160315
  15. PANTOPRAZOLE [Concomitant]
     Active Substance: PANTOPRAZOLE
     Indication: PRODUCT USED FOR UNKNOWN INDICATION
     Dosage: 20 MG, UNK
     Route: 048
  16. METOHEXAL SUCC [Concomitant]
     Active Substance: METOPROLOL SUCCINATE
     Indication: ATRIAL FIBRILLATION
     Dosage: 23.75 MG, BID
     Route: 048
     Dates: start: 201606
  17. METOHEXAL SUCC [Concomitant]
     Active Substance: METOPROLOL SUCCINATE
     Indication: HYPERTENSION
  18. JAKAVI [Suspect]
     Active Substance: RUXOLITINIB
     Dosage: 15 MG, QD
     Route: 048
     Dates: start: 20171109
  19. JAKAVI [Suspect]
     Active Substance: RUXOLITINIB
     Dosage: 20 MG, QD
     Route: 048
     Dates: start: 20180706
  20. ASPIRIN. [Concomitant]
     Active Substance: ASPIRIN
     Indication: ANGINA PECTORIS
     Dosage: 100 MG, UNK
     Route: 048
  21. XARELTO [Concomitant]
     Active Substance: RIVAROXABAN
     Indication: ATRIAL FIBRILLATION
     Dosage: 20 MG, QD
     Route: 048
     Dates: start: 20160510
  22. DELIX                              /00885601/ [Concomitant]
     Active Substance: RAMIPRIL
     Indication: HYPERTENSION
     Dosage: 1.25 MG, QD
     Route: 048
     Dates: start: 20160510, end: 20160615
  23. BELOC-ZOC COMP [Concomitant]
     Active Substance: HYDROCHLOROTHIAZIDE\METOPROLOL SUCCINATE
     Indication: HYPERTENSION
     Dosage: 23.75 MG, BID
     Route: 048
     Dates: start: 20160510, end: 20160615

REACTIONS (6)
  - Dizziness [Recovered/Resolved]
  - Hypertensive crisis [Recovered/Resolved]
  - Squamous cell carcinoma [Recovered/Resolved]
  - Cervicobrachial syndrome [Recovered/Resolved]
  - Blood pressure increased [Unknown]
  - Hypertensive crisis [Recovered/Resolved]

NARRATIVE: CASE EVENT DATE: 20160510
